FAERS Safety Report 14965052 (Version 1)
Quarter: 2018Q2

REPORT INFORMATION
  Report Type: Spontaneous
  Country: JP (occurrence: JP)
  Receive Date: 20180601
  Receipt Date: 20180601
  Transmission Date: 20180711
  Serious: Yes (Other)
  Sender: FDA-Public Use
  Company Number: JP-BAYER-2018-104000

PATIENT
  Age: 82 Year
  Sex: Male
  Weight: 51.8 kg

DRUGS (5)
  1. TULOBUTEROL [Concomitant]
     Active Substance: TULOBUTEROL
     Dosage: DAILY DOSE 2 MG
     Route: 003
  2. ISOSORBIDE DINITRATE. [Concomitant]
     Active Substance: ISOSORBIDE DINITRATE
     Dosage: DAILY DOSE 40 MG
     Route: 003
  3. AMBROXOL HYDROCHLORIDE [Concomitant]
     Active Substance: AMBROXOL HYDROCHLORIDE
     Dosage: DAILY DOSE 45 MG
     Route: 048
  4. BAYASPIRIN 100 MG [Suspect]
     Active Substance: ASPIRIN
     Indication: ANTIPLATELET THERAPY
     Dosage: DAILY DOSE 100 MG
     Route: 048
     Dates: end: 20140325
  5. BETANIS [Concomitant]
     Active Substance: MIRABEGRON
     Dosage: DAILY DOSE 50 MG
     Route: 048

REACTIONS (1)
  - Ischaemic stroke [None]
